FAERS Safety Report 7083615-4 (Version None)
Quarter: 2010Q4

REPORT INFORMATION
  Report Type: 
  Country: None (occurrence: None)
  Receive Date: 20101104
  Receipt Date: 20060830
  Transmission Date: 20110411
  Serious: Yes (Hospitalization)
  Sender: FDA-Public Use
  Company Number: MX-ROCHE-737908

PATIENT
  Sex: Male
  Weight: 72 kg

DRUGS (4)
  1. MYCOPHENOLATE MOFETIL [Suspect]
     Indication: RENAL TRANSPLANT
     Route: 048
     Dates: start: 20030808
  2. TACROLIMUS [Concomitant]
     Dates: start: 20030806
  3. PREDNISONE [Concomitant]
     Dates: start: 20030709
  4. OMEPRAZOLE [Concomitant]
     Dates: start: 20040126

REACTIONS (1)
  - HAEMORRHOIDS [None]
